FAERS Safety Report 8733393 (Version 2)
Quarter: 2012Q4

REPORT INFORMATION
  Report Type: 
  Country: US (occurrence: US)
  Receive Date: 20120821
  Receipt Date: 20120903
  Transmission Date: 20130627
  Serious: No
  Sender: FDA-Public Use
  Company Number: US-PFIZER INC-2012199541

PATIENT
  Age: 40 Year
  Sex: Female
  Weight: 81.6 kg

DRUGS (4)
  1. GENOTROPIN MQ [Suspect]
     Dosage: 0.2 mg, every day
     Route: 058
  2. CLIMARA [Concomitant]
     Dosage: 0.05 mg, UNK
  3. LEVOXYL [Concomitant]
     Dosage: 200 ug, UNK
  4. HYDRACORT [Concomitant]
     Dosage: 1 %

REACTIONS (4)
  - Oedema peripheral [Recovering/Resolving]
  - Tenderness [Recovering/Resolving]
  - Gait disturbance [Recovering/Resolving]
  - Therapeutic response unexpected [Unknown]
